FAERS Safety Report 5912120-0 (Version None)
Quarter: 2008Q4

REPORT INFORMATION
  Report Type: 
  Country: None (occurrence: None)
  Receive Date: 20081008
  Receipt Date: 20080929
  Transmission Date: 20090506
  Serious: Yes (Other)
  Sender: FDA-Public Use
  Company Number: US-ROCHE-588750

PATIENT
  Sex: Female

DRUGS (5)
  1. PEG-INTERFERON A-2A (RO 25-8310) [Suspect]
     Dosage: DOSING AMOUNT: 180 MCG, FORM: PFS
     Route: 065
     Dates: start: 20080919
  2. RIBASPHERE [Suspect]
     Route: 065
     Dates: start: 20080919
  3. SPIRONOLACTONE [Concomitant]
     Indication: PORTAL HYPERTENSION
  4. INDERAL [Concomitant]
     Indication: PORTAL HYPERTENSION
  5. LASIX [Concomitant]
     Indication: PORTAL HYPERTENSION

REACTIONS (1)
  - BLOOD PRESSURE DECREASED [None]
